FAERS Safety Report 4709847-5 (Version None)
Quarter: 2005Q3

REPORT INFORMATION
  Report Type: 
  Country: None (occurrence: None)
  Receive Date: 20050708
  Receipt Date: 20050617
  Transmission Date: 20060218
  Serious: Yes (Other)
  Sender: FDA-Public Use
  Company Number: JP-BOEHRINGER INGELHEIM PHARMACEUTICALS, INC.-2005-BP-11060NB

PATIENT
  Sex: Female

DRUGS (6)
  1. MICARDIS [Suspect]
     Indication: HYPERTENSION
     Route: 048
     Dates: start: 20050426, end: 20050620
  2. MEVALOTIN [Concomitant]
     Indication: HYPERLIPIDAEMIA
     Route: 048
     Dates: start: 19870101
  3. TAGAMET [Concomitant]
     Indication: RENAL DISORDER
     Route: 048
     Dates: start: 19890101
  4. MARZULENE [Concomitant]
     Route: 048
     Dates: start: 19891101
  5. ALVO [Concomitant]
     Indication: CERVICOBRACHIAL SYNDROME
     Route: 048
     Dates: start: 19891101
  6. CALBLOCK [Concomitant]
     Indication: HYPERTENSION
     Route: 048
     Dates: start: 20050621

REACTIONS (1)
  - DEPRESSED LEVEL OF CONSCIOUSNESS [None]
